FAERS Safety Report 15425175 (Version 1)
Quarter: 2018Q3

REPORT INFORMATION
  Report Type: Other
  Country: GB (occurrence: GB)
  Receive Date: 20180925
  Receipt Date: 20180925
  Transmission Date: 20181010
  Serious: Yes (Other)
  Sender: FDA-Public Use
  Company Number: GB-CELLTRION INC.-2018GB022552

PATIENT

DRUGS (3)
  1. REMSIMA [Suspect]
     Active Substance: INFLIXIMAB
     Indication: CROHN^S DISEASE
     Dosage: 445 MG
     Route: 042
     Dates: start: 20180828, end: 20180828
  2. PENTASA [Concomitant]
     Active Substance: MESALAMINE
     Dosage: 2 G, DAILY
  3. AZATHIOPRINE. [Concomitant]
     Active Substance: AZATHIOPRINE
     Dosage: 100 MG, DAILY

REACTIONS (6)
  - Flushing [Recovering/Resolving]
  - Nasopharyngitis [Recovering/Resolving]
  - Chest discomfort [Recovering/Resolving]
  - Influenza like illness [Recovering/Resolving]
  - Chills [Recovering/Resolving]
  - Myalgia [Unknown]

NARRATIVE: CASE EVENT DATE: 20180828
